FAERS Safety Report 7509103-6 (Version None)
Quarter: 2011Q2

REPORT INFORMATION
  Report Type: 
  Country: None (occurrence: None)
  Receive Date: 20110527
  Receipt Date: 20110516
  Transmission Date: 20111010
  Serious: Yes (Hospitalization)
  Sender: FDA-Public Use
  Company Number: DE-JNJFOC-20110506303

PATIENT
  Sex: Male

DRUGS (46)
  1. HALDOL [Suspect]
     Route: 042
     Dates: start: 20050627, end: 20050630
  2. CLONIDINE [Interacting]
     Indication: PRODUCT USED FOR UNKNOWN INDICATION
     Route: 042
     Dates: start: 20050624, end: 20050709
  3. LUDIOMIL [Interacting]
     Route: 048
     Dates: start: 20050705, end: 20050710
  4. ASPIRIN [Interacting]
     Indication: PRODUCT USED FOR UNKNOWN INDICATION
     Route: 048
     Dates: start: 20050706, end: 20050706
  5. NOVALGIN [Interacting]
     Indication: PRODUCT USED FOR UNKNOWN INDICATION
     Route: 042
     Dates: start: 20050709, end: 20050709
  6. HALDOL [Suspect]
     Route: 042
     Dates: start: 20050703, end: 20050704
  7. HALDOL [Suspect]
     Route: 042
     Dates: start: 20050625, end: 20050625
  8. NITRAZEPAM [Interacting]
     Indication: PRODUCT USED FOR UNKNOWN INDICATION
     Route: 042
     Dates: start: 20050702, end: 20050702
  9. NITRAZEPAM [Interacting]
     Route: 042
     Dates: start: 20050623, end: 20050624
  10. PROMETHAZINE HCL [Interacting]
     Route: 042
     Dates: start: 20050709, end: 20050709
  11. TORSEMIDE [Interacting]
     Indication: PRODUCT USED FOR UNKNOWN INDICATION
     Route: 065
     Dates: start: 20050622, end: 20050622
  12. TORSEMIDE [Interacting]
     Route: 048
     Dates: start: 20050704, end: 20050711
  13. CIPROFLOXACIN HYDROCHLORIDE [Interacting]
     Indication: PRODUCT USED FOR UNKNOWN INDICATION
     Route: 042
     Dates: start: 20050709, end: 20050711
  14. CLORAZEPATE DIPOTASSIUM [Interacting]
     Route: 042
     Dates: start: 20050705, end: 20050705
  15. CLORAZEPATE DIPOTASSIUM [Interacting]
     Route: 042
     Dates: start: 20050624, end: 20050624
  16. LUDIOMIL [Interacting]
     Indication: PRODUCT USED FOR UNKNOWN INDICATION
     Route: 042
     Dates: start: 20050630, end: 20050630
  17. METHYLPREDNISOLONE [Interacting]
     Indication: PRODUCT USED FOR UNKNOWN INDICATION
     Route: 042
     Dates: start: 20050624, end: 20050624
  18. NEXIUM [Interacting]
     Indication: PRODUCT USED FOR UNKNOWN INDICATION
     Route: 042
     Dates: start: 20050622, end: 20050703
  19. PROPOFOL [Interacting]
     Route: 042
     Dates: start: 20050623, end: 20050623
  20. ESKETAMINE [Interacting]
     Route: 042
     Dates: start: 20050705, end: 20050705
  21. LORAZEPAM [Interacting]
     Indication: PRODUCT USED FOR UNKNOWN INDICATION
     Route: 042
     Dates: start: 20050709, end: 20050709
  22. MORPHINE [Interacting]
     Indication: PRODUCT USED FOR UNKNOWN INDICATION
     Route: 065
     Dates: start: 20050622, end: 20050622
  23. LUDIOMIL [Interacting]
     Route: 042
     Dates: start: 20050628, end: 20050629
  24. TORSEMIDE [Interacting]
     Route: 042
     Dates: start: 20050623, end: 20050623
  25. CLORAZEPATE DIPOTASSIUM [Interacting]
     Route: 042
     Dates: start: 20050629, end: 20050701
  26. PROMETHAZINE HCL [Interacting]
     Route: 048
     Dates: start: 20050708, end: 20050708
  27. LORAZEPAM [Interacting]
     Route: 042
     Dates: start: 20050705, end: 20050705
  28. TORSEMIDE [Interacting]
     Route: 042
     Dates: start: 20050624, end: 20050703
  29. NEXIUM [Interacting]
     Route: 048
     Dates: start: 20050704, end: 20050711
  30. SCOPOLAMINE [Interacting]
     Indication: PRODUCT USED FOR UNKNOWN INDICATION
     Route: 042
     Dates: start: 20050709, end: 20050709
  31. ACETAMINOPHEN [Interacting]
     Indication: PRODUCT USED FOR UNKNOWN INDICATION
     Route: 042
     Dates: start: 20050709, end: 20050709
  32. HALDOL [Suspect]
     Indication: PRODUCT USED FOR UNKNOWN INDICATION
     Route: 042
     Dates: start: 20050626, end: 20050626
  33. HALDOL [Suspect]
     Route: 042
     Dates: start: 20050701, end: 20050701
  34. PROPOFOL [Interacting]
     Indication: ANAESTHESIA
     Route: 042
     Dates: start: 20050625, end: 20050625
  35. PROPOFOL [Interacting]
     Route: 042
     Dates: start: 20050622, end: 20050622
  36. CLORAZEPATE DIPOTASSIUM [Interacting]
     Route: 042
     Dates: start: 20050627, end: 20050627
  37. CLORAZEPATE DIPOTASSIUM [Interacting]
     Route: 042
     Dates: start: 20050625, end: 20050625
  38. LUDIOMIL [Interacting]
     Route: 042
     Dates: start: 20050701, end: 20050704
  39. LUDIOMIL [Interacting]
     Route: 048
     Dates: start: 20050711, end: 20050711
  40. HALDOL [Suspect]
     Route: 042
     Dates: start: 20050702, end: 20050702
  41. PROPOFOL [Interacting]
     Route: 042
     Dates: start: 20050624, end: 20050624
  42. CLORAZEPATE DIPOTASSIUM [Interacting]
     Indication: PRODUCT USED FOR UNKNOWN INDICATION
     Route: 042
     Dates: start: 20050708, end: 20050708
  43. ESKETAMINE [Interacting]
     Indication: PRODUCT USED FOR UNKNOWN INDICATION
     Route: 042
     Dates: start: 20050708, end: 20050708
  44. PROMETHAZINE HCL [Interacting]
     Indication: PRODUCT USED FOR UNKNOWN INDICATION
     Route: 048
     Dates: start: 20050710, end: 20050710
  45. MADOPAR [Interacting]
     Indication: PRODUCT USED FOR UNKNOWN INDICATION
     Route: 048
     Dates: start: 20050707, end: 20050710
  46. METOCLOPRAMIDE [Interacting]
     Indication: PRODUCT USED FOR UNKNOWN INDICATION
     Route: 065
     Dates: start: 20050709, end: 20050709

REACTIONS (9)
  - WRONG DRUG ADMINISTERED [None]
  - INCORRECT DOSE ADMINISTERED [None]
  - TRACHEOBRONCHITIS [None]
  - DISORIENTATION [None]
  - CHOLANGITIS [None]
  - AKATHISIA [None]
  - DRUG INTERACTION [None]
  - FALL [None]
  - PERITONITIS [None]
